FAERS Safety Report 5375105-1 (Version None)
Quarter: 2007Q2

REPORT INFORMATION
  Report Type: 
  Country: None (occurrence: None)
  Receive Date: 20070625
  Receipt Date: 20070306
  Transmission Date: 20071010
  Serious: Yes (Hospitalization)
  Sender: FDA-Public Use
  Company Number: 07P-163-0358661-00

PATIENT
  Age: 48 Year
  Sex: Female
  Weight: 85.2762 kg

DRUGS (13)
  1. HUMIRA [Suspect]
     Indication: PSORIASIS
     Dosage: 40 MG, 1 IN 2 WK, SUBCUTANEOUS
     Route: 058
     Dates: start: 20060619, end: 20070131
  2. HUMIRA [Suspect]
     Indication: PSORIATIC ARTHROPATHY
     Dosage: 40 MG, 1 IN 2 WK, SUBCUTANEOUS
     Route: 058
     Dates: start: 20060619, end: 20070131
  3. RABEPRAZOLE SODIUM [Concomitant]
  4. PROPRANOLOL HYDROCHLORIDE [Concomitant]
  5. VYTORIN [Concomitant]
  6. AXOTAL [Concomitant]
  7. B-DOT [Concomitant]
  8. LANSOPRAZOLE [Concomitant]
  9. ESTRADIOL [Concomitant]
  10. ASPIRIN [Concomitant]
  11. CARVEDILOL [Concomitant]
  12. CLOPIDOGREL BISULFATE [Concomitant]
  13. VALSARTAN [Concomitant]

REACTIONS (12)
  - ACUTE MYOCARDIAL INFARCTION [None]
  - ATELECTASIS [None]
  - BREAST CYST [None]
  - CARDIAC FAILURE CONGESTIVE [None]
  - CHEST PAIN [None]
  - FATIGUE [None]
  - FIBROADENOMA OF BREAST [None]
  - HAEMODYNAMIC INSTABILITY [None]
  - PERICARDIAL EFFUSION [None]
  - PLEURAL EFFUSION [None]
  - PULMONARY HYPERTENSION [None]
  - RESPIRATORY TRACT INFECTION [None]
